FAERS Safety Report 9226903 (Version 2)
Quarter: 2013Q2

REPORT INFORMATION
  Report Type: Spontaneous
  Country: US (occurrence: US)
  Receive Date: 20130412
  Receipt Date: 20130426
  Transmission Date: 20140414
  Serious: Yes (Hospitalization)
  Sender: FDA-Public Use
  Company Number: US-TEVA-397563USA

PATIENT
  Age: 3 Year
  Sex: Female

DRUGS (1)
  1. AZITHROMYCIN [Suspect]
     Indication: OTITIS MEDIA
     Dosage: 100 MG/5 ML; 1 TSP ON DAY 1, THEN 1/2 TSP DAILY FOR 4 DAYS
     Dates: start: 20130313

REACTIONS (4)
  - Serum sickness-like reaction [Recovered/Resolved]
  - Local swelling [Recovered/Resolved]
  - Chills [Recovered/Resolved]
  - Pyrexia [Recovered/Resolved]
